FAERS Safety Report 9680921 (Version 1)
Quarter: 2013Q4

REPORT INFORMATION
  Report Type: Report from Study
  Country: GB (occurrence: GB)
  Receive Date: 20131111
  Receipt Date: 20131111
  Transmission Date: 20140711
  Serious: Yes (Hospitalization, Other)
  Sender: FDA-Public Use
  Company Number: GB-ROCHE-1299668

PATIENT
  Sex: Female
  Weight: 88 kg

DRUGS (6)
  1. RITUXIMAB [Suspect]
     Indication: RHEUMATOID ARTHRITIS
     Dosage: LAST DOSE PRIOR TO SAE 28/SEP/2013
     Route: 065
     Dates: start: 20120914
  2. PIRITON [Concomitant]
     Route: 048
  3. PIRITON [Concomitant]
     Route: 065
  4. PARACETAMOL [Concomitant]
     Route: 065
  5. HYDROCORTISONE [Concomitant]
     Route: 042
  6. METHOTREXATE [Concomitant]

REACTIONS (4)
  - Headache [Recovered/Resolved]
  - Pain [Recovered/Resolved]
  - Abdominal pain [Recovered/Resolved]
  - Visual impairment [Recovered/Resolved]
